FAERS Safety Report 15000937 (Version 4)
Quarter: 2019Q1

REPORT INFORMATION
  Report Type: Report from Study
  Country: DE (occurrence: DE)
  Receive Date: 20180612
  Receipt Date: 20190326
  Transmission Date: 20190417
  Serious: Yes (Hospitalization, Other)
  Sender: FDA-Public Use
  Company Number: PHHY2017DE163940

PATIENT
  Age: 77 Year
  Sex: Male
  Weight: 101 kg

DRUGS (10)
  1. CANDESARTAN RATIOPHARM [Concomitant]
     Indication: HYPERTENSION
     Dosage: 8 MG, QD
     Route: 048
     Dates: start: 201607
  2. VOTRIENT [Suspect]
     Active Substance: PAZOPANIB HYDROCHLORIDE
     Indication: METASTATIC RENAL CELL CARCINOMA
     Dosage: 800 MG, QD
     Route: 048
     Dates: start: 20170726, end: 20171030
  3. KEPPRA [Concomitant]
     Active Substance: LEVETIRACETAM
     Indication: EPILEPSY
     Dosage: 500 MG, BID
     Route: 048
     Dates: start: 201607
  4. VOTRIENT [Suspect]
     Active Substance: PAZOPANIB HYDROCHLORIDE
     Dosage: 400 MG, QD
     Route: 048
     Dates: start: 20171031, end: 20180409
  5. XARELTO [Suspect]
     Active Substance: RIVAROXABAN
     Indication: PULMONARY EMBOLISM
     Dosage: 15 MG, QD
     Route: 048
     Dates: start: 201609
  6. RANITIDIN RATIOPHARM [Concomitant]
     Indication: PROPHYLAXIS
     Dosage: 150 MG, QD
     Route: 048
     Dates: start: 201608
  7. TORASEMID-RATIOPHARM [Concomitant]
     Active Substance: TORSEMIDE
     Indication: RENAL FAILURE
     Dosage: 10 MG, QD
     Route: 048
     Dates: start: 201607
  8. VERAPAMIL-RATIOPHARM [Concomitant]
     Indication: HYPERTENSION
     Dosage: 80 MG, BID
     Route: 048
     Dates: start: 201502
  9. KEPPRA [Concomitant]
     Active Substance: LEVETIRACETAM
     Indication: SYNCOPE
  10. KEPPRA [Concomitant]
     Active Substance: LEVETIRACETAM
     Indication: SEIZURE

REACTIONS (11)
  - Decreased appetite [Not Recovered/Not Resolved]
  - Pneumonia streptococcal [Recovered/Resolved]
  - Thrombocytopenia [Not Recovered/Not Resolved]
  - Hemiparesis [Unknown]
  - Cerebral haemorrhage [Recovered/Resolved with Sequelae]
  - Weight decreased [Not Recovered/Not Resolved]
  - Insomnia [Not Recovered/Not Resolved]
  - Pneumonia [Recovered/Resolved]
  - Asthenia [Not Recovered/Not Resolved]
  - Cerebral amyloid angiopathy [Recovered/Resolved with Sequelae]
  - Dysgeusia [Not Recovered/Not Resolved]

NARRATIVE: CASE EVENT DATE: 20170801
